FAERS Safety Report 25223794 (Version 1)
Quarter: 2025Q2

REPORT INFORMATION
  Report Type: Spontaneous
  Country: CN (occurrence: CN)
  Receive Date: 20250422
  Receipt Date: 20250422
  Transmission Date: 20250717
  Serious: Yes (Life-Threatening, Hospitalization, Other)
  Sender: RANBAXY
  Company Number: CN-SUN PHARMACEUTICAL INDUSTRIES LTD-2025R1-504356

PATIENT
  Age: 62 Year
  Sex: Female

DRUGS (5)
  1. MOXIFLOXACIN [Suspect]
     Active Substance: MOXIFLOXACIN
     Indication: Pneumonia legionella
     Dosage: 0.4 GRAM, DAILY
     Route: 042
  2. MEROPENEM [Suspect]
     Active Substance: MEROPENEM
     Indication: Pneumonia legionella
     Dosage: 1 GRAM, BID
     Route: 042
  3. MEROPENEM [Suspect]
     Active Substance: MEROPENEM
     Dosage: 1 GRAM, TID
     Route: 042
  4. SULFAMETHOXAZOLE\TRIMETHOPRIM [Suspect]
     Active Substance: SULFAMETHOXAZOLE\TRIMETHOPRIM
     Indication: Pneumonia legionella
     Dosage: 0.96 GRAM, TID
     Route: 048
  5. GANCICLOVIR [Suspect]
     Active Substance: GANCICLOVIR
     Indication: Pneumonia legionella
     Dosage: 0.075 GRAM, DAILY
     Route: 042

REACTIONS (5)
  - Treatment failure [Unknown]
  - Mental disorder [Unknown]
  - Blood pressure decreased [Unknown]
  - Disease progression [Unknown]
  - Septic shock [Unknown]
